FAERS Safety Report 4368055-0 (Version None)
Quarter: 2004Q2

REPORT INFORMATION
  Report Type: 
  Country: None (occurrence: None)
  Receive Date: 20040527
  Receipt Date: 20040206
  Transmission Date: 20050107
  Serious: No
  Sender: FDA-Public Use
  Company Number: 204636

PATIENT
  Age: 45 Year
  Sex: Male

DRUGS (1)
  1. RAPTIVA [Suspect]
     Indication: PSORIASIS
     Dosage: 0.7 MG/KG, SINGLE, SUBCUTANEOUS
     Route: 058
     Dates: start: 20040204, end: 20040204

REACTIONS (2)
  - HEADACHE [None]
  - PAIN [None]
